FAERS Safety Report 6544811-5 (Version None)
Quarter: 2010Q1

REPORT INFORMATION
  Report Type: 
  Country: None (occurrence: None)
  Receive Date: 20100121
  Receipt Date: 20100112
  Transmission Date: 20100710
  Serious: Yes (Hospitalization)
  Sender: FDA-Public Use
  Company Number: NL-ASTRAZENECA-2010SE02424

PATIENT
  Age: 24309 Day
  Sex: Female
  Weight: 105 kg

DRUGS (23)
  1. ARIMIDEX [Suspect]
     Indication: BREAST CANCER
     Route: 048
     Dates: start: 20081112
  2. METFORMIN [Concomitant]
     Route: 065
  3. ACENOCOUMAROL [Concomitant]
     Route: 065
  4. LYRICA [Concomitant]
     Route: 065
  5. CELIPROLOL [Concomitant]
     Route: 065
  6. COVERSYL [Concomitant]
     Route: 065
  7. FURON [Concomitant]
     Route: 065
  8. NITROGLYCERIN [Concomitant]
     Route: 065
  9. THYRAX [Concomitant]
     Route: 065
  10. PANTOPRAZOLE [Concomitant]
     Route: 065
  11. SIMVA [Concomitant]
     Route: 065
  12. BISACODYL [Concomitant]
     Route: 065
  13. ARCOXIA [Concomitant]
     Route: 065
  14. PREDNISON [Concomitant]
     Route: 065
  15. AVELOX [Concomitant]
     Route: 065
  16. CODEINE [Concomitant]
     Dosage: 10 MG EVERY 2-3 DAYS
     Route: 065
  17. DURAGESIC-100 [Concomitant]
     Route: 065
  18. COMBIVENT [Concomitant]
     Route: 065
  19. SEVENDE [Concomitant]
     Route: 065
  20. TRIMETHOPRIM [Concomitant]
     Route: 065
  21. HYDROCHLOROTHIAZIDE [Concomitant]
     Route: 065
  22. DOMPERIDONE [Concomitant]
     Route: 065
  23. FENOANTIN [Concomitant]
     Route: 065

REACTIONS (1)
  - PERIPHERAL NERVE DECOMPRESSION [None]
